FAERS Safety Report 7133097-9 (Version None)
Quarter: 2010Q4

REPORT INFORMATION
  Report Type: 
  Country: None (occurrence: None)
  Receive Date: 20101202
  Receipt Date: 20101129
  Transmission Date: 20110411
  Serious: Yes (Hospitalization)
  Sender: FDA-Public Use
  Company Number: B0687089A

PATIENT
  Sex: Female

DRUGS (2)
  1. TYKERB [Suspect]
     Dosage: 5IUAX PER DAY
     Route: 048
     Dates: start: 20101104
  2. XELODA [Concomitant]
     Route: 048
     Dates: start: 20101104

REACTIONS (2)
  - ANEURYSM [None]
  - GASTROINTESTINAL HAEMORRHAGE [None]
